FAERS Safety Report 10232403 (Version 1)
Quarter: 2014Q2

REPORT INFORMATION
  Report Type: Spontaneous
  Country: US (occurrence: None)
  Receive Date: 20140610
  Receipt Date: 20140610
  Transmission Date: 20141212
  Serious: Yes (Death, Congenital Anomaly)
  Sender: FDA-Public Use
  Company Number: SYM-2014-21791

PATIENT
  Sex: Female
  Weight: 1.87 kg

DRUGS (5)
  1. ACICLOVIR (ACICLOVIR) [Suspect]
     Indication: HERPES SIMPLEX
     Route: 064
  2. PIP/TAZO [Suspect]
     Indication: HERPES SIMPLEX
     Route: 064
  3. AZITHROMYCIN (AZITHROMYCIN) [Suspect]
     Indication: HERPES SIMPLEX
     Route: 064
  4. FOSCARNET SODIUM [Suspect]
     Indication: HERPES SIMPLEX
     Route: 064
  5. MISOPROSTOL [Suspect]
     Indication: LABOUR INDUCTION
     Route: 064

REACTIONS (4)
  - Schizencephaly [None]
  - Maternal drugs affecting foetus [None]
  - Ascites [None]
  - Stillbirth [None]
